FAERS Safety Report 7775913-3 (Version None)
Quarter: 2011Q3

REPORT INFORMATION
  Report Type: 
  Country: None (occurrence: None)
  Receive Date: 20110923
  Receipt Date: 20110921
  Transmission Date: 20111222
  Serious: Yes (Death, Hospitalization)
  Sender: FDA-Public Use
  Company Number: US-B.I. PHARMACEUTICALS,INC./RIDGEFIELD-2011-BP-21317BP

PATIENT
  Age: 70 Year
  Sex: Male
  Weight: 73.94 kg

DRUGS (4)
  1. SOTALOL HCL [Concomitant]
     Dosage: 160 MG
  2. MICARDIS HCT [Concomitant]
  3. PRADAXA [Suspect]
     Indication: ATRIAL FIBRILLATION
     Dosage: 300 MG
     Dates: start: 20110218
  4. NORVASC [Concomitant]
     Dosage: 2.5 MG
     Dates: start: 20110218

REACTIONS (1)
  - HAEMORRHAGE INTRACRANIAL [None]
